FAERS Safety Report 17096215 (Version 2)
Quarter: 2019Q4

REPORT INFORMATION
  Report Type: Spontaneous
  Country: US (occurrence: US)
  Receive Date: 20191202
  Receipt Date: 20191221
  Transmission Date: 20200122
  Serious: No
  Sender: FDA-Public Use
  Company Number: US-APOTEX-2019AP024876

PATIENT
  Sex: Female

DRUGS (1)
  1. MOMETASONE [Suspect]
     Active Substance: MOMETASONE
     Indication: PRODUCT USED FOR UNKNOWN INDICATION
     Dosage: UNK
     Route: 065

REACTIONS (4)
  - Drug ineffective [Unknown]
  - Product substitution issue [Unknown]
  - Unevaluable event [Unknown]
  - Feeling abnormal [Unknown]
